FAERS Safety Report 7809478-4 (Version None)
Quarter: 2011Q4

REPORT INFORMATION
  Report Type: 
  Country: None (occurrence: None)
  Receive Date: 20111012
  Receipt Date: 20110928
  Transmission Date: 20120403
  Serious: Yes (Other)
  Sender: FDA-Public Use
  Company Number: PHHY2011FR86638

PATIENT
  Age: 14 Year
  Sex: Female

DRUGS (12)
  1. FLUCONAZOLE [Concomitant]
     Dosage: UNK UKN, UNK
  2. NEORAL [Suspect]
     Indication: BONE MARROW TRANSPLANT
     Dosage: 100 MG, BID
     Dates: start: 20110617
  3. PREDNISONE [Concomitant]
     Dosage: 15 MG
  4. VALACYCLOVIR HYDROCHLORIDE [Concomitant]
     Dosage: UNK UKN, UNK
  5. PHENOXYMETHYL PENICILLIN [Concomitant]
     Dosage: UNK UKN, UNK
  6. BACTRIM [Concomitant]
     Dosage: UNK UKN, UNK
  7. NEORAL [Suspect]
     Dosage: 75 MG, BID
  8. ENTOCORT EC [Concomitant]
     Dosage: UNK UKN, UNK
  9. NEORAL [Suspect]
     Dosage: 50 MG, BID
  10. CHLORMADINONE ACETATE TAB [Concomitant]
     Dosage: UNK UKN, UNK
  11. SPECIAFOLDINE [Concomitant]
     Dosage: UNK UKN, UNK
  12. MAGNESIUM [Concomitant]
     Dosage: UNK UKN, UNK

REACTIONS (10)
  - MEMORY IMPAIRMENT [None]
  - CHILLS [None]
  - OBSESSIVE-COMPULSIVE DISORDER [None]
  - DISTURBANCE IN ATTENTION [None]
  - DIARRHOEA [None]
  - GRAFT VERSUS HOST DISEASE [None]
  - TREMOR [None]
  - HYPERTENSION [None]
  - BLOOD CREATININE INCREASED [None]
  - BURNING SENSATION [None]
